FAERS Safety Report 8533941-4 (Version None)
Quarter: 2012Q3

REPORT INFORMATION
  Report Type: 
  Country: None (occurrence: None)
  Receive Date: 20120724
  Receipt Date: 20120709
  Transmission Date: 20120928
  Serious: Yes (Hospitalization)
  Sender: FDA-Public Use
  Company Number: IT-ROCHE-1088698

PATIENT
  Sex: Male

DRUGS (2)
  1. NAPROSYN [Suspect]
     Indication: ARTHRITIS
     Dosage: PERMANENTLY DISCONTINUED
     Route: 048
     Dates: start: 20120521, end: 20120521
  2. TELMISARTAN AND HYDROCHLOROTHIAZIDE [Concomitant]
     Indication: HYPERTENSION
     Dosage: 40/12.5 MG

REACTIONS (7)
  - HAEMORRHAGIC ANAEMIA [None]
  - DEPRESSED LEVEL OF CONSCIOUSNESS [None]
  - TINNITUS [None]
  - MELAENA [None]
  - DUODENAL ULCER HAEMORRHAGE [None]
  - FATIGUE [None]
  - PALPITATIONS [None]
